FAERS Safety Report 5046553-4 (Version None)
Quarter: 2006Q2

REPORT INFORMATION
  Report Type: 
  Country: None (occurrence: None)
  Receive Date: 20060630
  Receipt Date: 20060620
  Transmission Date: 20061013
  Serious: Yes (Other)
  Sender: FDA-Public Use
  Company Number: 2006VX000726

PATIENT
  Age: 63 Year
  Sex: Male

DRUGS (4)
  1. TASMAR [Suspect]
     Indication: PARKINSON'S DISEASE
     Dosage: PO
     Route: 048
  2. LEVODOPA [Concomitant]
  3. BENSERAZIDE [Concomitant]
  4. CARBIODPA [Concomitant]

REACTIONS (3)
  - GASTROINTESTINAL CARCINOMA [None]
  - MALIGNANT NEOPLASM PROGRESSION [None]
  - METASTASES TO LIVER [None]
